FAERS Safety Report 9531850 (Version 1)
Quarter: 2013Q3

REPORT INFORMATION
  Report Type: Spontaneous
  Country: US (occurrence: None)
  Receive Date: 20130917
  Receipt Date: 20130917
  Transmission Date: 20140515
  Serious: Yes (Hospitalization)
  Sender: FDA-Public Use
  Company Number: None

PATIENT
  Age: 86 Year
  Sex: Male
  Weight: 68.49 kg

DRUGS (13)
  1. RIVAROXABAN [Suspect]
     Indication: DEEP VEIN THROMBOSIS
     Route: 048
     Dates: start: 20130902, end: 20130913
  2. AMIODARONE [Concomitant]
  3. CARDIZEM [Concomitant]
  4. ADVAIR [Concomitant]
  5. FUROSEMIDE [Concomitant]
  6. GABAPENTIN [Concomitant]
  7. XARELTO [Concomitant]
  8. FLOMAX [Concomitant]
  9. SPIRIVA [Concomitant]
  10. AZITHROMYCIN [Concomitant]
  11. PREDNISONE TAPER [Concomitant]
  12. OMEPRAZOLE [Concomitant]
  13. SIMVASTATIN [Concomitant]

REACTIONS (5)
  - Epistaxis [None]
  - Gastrointestinal haemorrhage [None]
  - Haemoglobin decreased [None]
  - Hypotension [None]
  - International normalised ratio increased [None]
